FAERS Safety Report 8589510-3 (Version None)
Quarter: 2012Q3

REPORT INFORMATION
  Report Type: 
  Country: None (occurrence: None)
  Receive Date: 20120813
  Receipt Date: 20120801
  Transmission Date: 20120928
  Serious: Yes (Hospitalization)
  Sender: FDA-Public Use
  Company Number: FR-ELI_LILLY_AND_COMPANY-FR201208001074

PATIENT
  Sex: Female

DRUGS (17)
  1. PREDNISONE TAB [Concomitant]
     Dosage: 2.5 MG, TID
     Dates: start: 20120131, end: 20120214
  2. PREDNISONE TAB [Concomitant]
     Dosage: 2.5 MG, BID
     Dates: start: 20120215
  3. COLECALCIFEROL [Concomitant]
  4. LEXOMIL [Concomitant]
  5. ACETAMINOPHEN [Concomitant]
  6. BACTRIM [Concomitant]
  7. RISPERDAL [Concomitant]
  8. RALOXIFENE HYDROCHLORIDE [Suspect]
     Indication: PROPHYLAXIS
     Dosage: 60 MG, QD
     Dates: end: 20111206
  9. PANTOPRAZOLE SODIUM [Concomitant]
  10. ADANCOR [Concomitant]
  11. CALCIUM [Concomitant]
  12. ACETAMINOPHEN AND TRAMADOL HCL [Concomitant]
  13. RALOXIFENE [Suspect]
     Indication: PROPHYLAXIS
     Dosage: 60 MG, QD
     Route: 048
     Dates: start: 20111206, end: 20120531
  14. PYOSTACINE [Concomitant]
  15. DURAGESIC-100 [Concomitant]
  16. PREVISCAN [Concomitant]
  17. PREDNISONE TAB [Concomitant]
     Dosage: 5 MG, TID
     Route: 048
     Dates: start: 20111206, end: 20120130

REACTIONS (4)
  - RHEUMATOID ARTHRITIS [None]
  - GAIT DISTURBANCE [None]
  - DEEP VEIN THROMBOSIS [None]
  - ACTIVITIES OF DAILY LIVING IMPAIRED [None]
